FAERS Safety Report 4521657-0 (Version None)
Quarter: 2004Q4

REPORT INFORMATION
  Report Type: 
  Country: None (occurrence: None)
  Receive Date: 20041206
  Receipt Date: 20041124
  Transmission Date: 20050328
  Serious: Yes (Other)
  Sender: FDA-Public Use
  Company Number: 2004UW24375

PATIENT
  Sex: Female

DRUGS (4)
  1. SEROQUEL [Suspect]
     Dates: start: 20010501
  2. SEROQUEL [Suspect]
     Dosage: 300 MG DAILY PO
     Route: 048
     Dates: start: 20021201
  3. CLONAZEPAM [Concomitant]
  4. SYNTHROID [Concomitant]

REACTIONS (1)
  - PLATELET COUNT DECREASED [None]
